FAERS Safety Report 12342067 (Version 4)
Quarter: 2016Q2

REPORT INFORMATION
  Report Type: Spontaneous
  Country: US (occurrence: US)
  Receive Date: 20160506
  Receipt Date: 20160526
  Transmission Date: 20160815
  Serious: Yes (Other)
  Sender: FDA-Public Use
  Company Number: US-009507513-1605USA003303

PATIENT

DRUGS (2)
  1. HEPARIN [Concomitant]
     Active Substance: HEPARIN SODIUM
     Indication: THROMBOSIS IN DEVICE
     Dosage: 5 +/- 4 DAYS ALONE PRIOR ADDITION OF EPTIFIBATIDE
  2. INTEGRILIN [Suspect]
     Active Substance: EPTIFIBATIDE
     Indication: THROMBOSIS IN DEVICE
     Dosage: TYPICALLY STARTED AT 0.5 MCG/KG/MIN AND TITRATED UP TO A MAXIMUM OF 2 MCG/KG/MIN

REACTIONS (1)
  - Treatment failure [Unknown]
